FAERS Safety Report 5375835-1 (Version None)
Quarter: 2007Q3

REPORT INFORMATION
  Report Type: 
  Country: None (occurrence: None)
  Receive Date: 20070702
  Receipt Date: 20070621
  Transmission Date: 20080115
  Serious: Yes (Other)
  Sender: FDA-Public Use
  Company Number: PHBS2007BR08181

PATIENT
  Age: 59 Year
  Sex: Female

DRUGS (3)
  1. ZADITEN [Suspect]
     Indication: RHINITIS ALLERGIC
     Dosage: 2 MG, QD
     Route: 048
  2. ZADITEN [Suspect]
     Dosage: 0.5 MG, QD
  3. ALLEGRA [Concomitant]

REACTIONS (8)
  - ABDOMINAL PAIN [None]
  - BLOOD CHOLESTEROL INCREASED [None]
  - CHROMATURIA [None]
  - CYSTITIS [None]
  - DRY MOUTH [None]
  - IRRITABILITY [None]
  - MALAISE [None]
  - SOMNOLENCE [None]
